FAERS Safety Report 5026640-7 (Version None)
Quarter: 2006Q2

REPORT INFORMATION
  Report Type: 
  Country: None (occurrence: None)
  Receive Date: 20060615
  Receipt Date: 20060605
  Transmission Date: 20061013
  Serious: Yes (Other)
  Sender: FDA-Public Use
  Company Number: US-GLAXOSMITHKLINE-A0607936A

PATIENT
  Age: 70 Year
  Sex: Female

DRUGS (4)
  1. LAMICTAL [Suspect]
     Indication: BIPOLAR DISORDER
     Dosage: 50MG PER DAY
     Route: 048
     Dates: start: 20050901
  2. DICYCLOMINE [Concomitant]
  3. MIRAPEX [Concomitant]
  4. BUTALBITAL, ACETAMINOPHEN, CAFFEINE [Concomitant]

REACTIONS (2)
  - MANIA [None]
  - MOUTH ULCERATION [None]
